FAERS Safety Report 6183121-5 (Version None)
Quarter: 2009Q2

REPORT INFORMATION
  Report Type: 
  Country: None (occurrence: None)
  Receive Date: 20090507
  Receipt Date: 20090430
  Transmission Date: 20091009
  Serious: Yes (Hospitalization, Other)
  Sender: FDA-Public Use
  Company Number: PHMT2006CA00944

PATIENT
  Sex: Male

DRUGS (5)
  1. SANDOSTATIN LAR [Suspect]
     Indication: CARCINOID TUMOUR
     Dosage: 30 MG, UNK
     Route: 030
     Dates: start: 20051223
  2. SANDOSTATIN LAR [Suspect]
     Dosage: 20 MG, QMO
     Route: 030
     Dates: start: 20051229, end: 20060322
  3. SANDOSTATIN LAR [Suspect]
     Dosage: 30MG EVERY 4 WEEKS
     Dates: start: 20060323
  4. SANDOSTATIN LAR [Suspect]
     Dosage: 20 MG, EVERY 4 WEEKS
     Route: 030
     Dates: start: 20071212
  5. INSULIN [Concomitant]

REACTIONS (20)
  - ANOREXIA [None]
  - ANXIETY [None]
  - ASTHENIA [None]
  - BILE DUCT OBSTRUCTION [None]
  - BILE DUCT STENT INSERTION [None]
  - BLOOD PRODUCT TRANSFUSION [None]
  - CHOLELITHIASIS [None]
  - CLOTTING FACTOR TRANSFUSION [None]
  - COSTOVERTEBRAL ANGLE TENDERNESS [None]
  - DIARRHOEA [None]
  - FATIGUE [None]
  - HEPATIC EMBOLISATION [None]
  - INFLUENZA [None]
  - INJECTION SITE DISCOMFORT [None]
  - JAUNDICE [None]
  - MALIGNANT NEOPLASM PROGRESSION [None]
  - PYREXIA [None]
  - SURGERY [None]
  - WEIGHT DECREASED [None]
  - YELLOW SKIN [None]
